FAERS Safety Report 22160224 (Version 1)
Quarter: 2023Q1

REPORT INFORMATION
  Report Type: Spontaneous
  Country: US (occurrence: None)
  Receive Date: 20230330
  Receipt Date: 20230330
  Transmission Date: 20230417
  Serious: Yes (Hospitalization)
  Sender: FDA-Public Use
  Company Number: None

PATIENT
  Age: 63 Year
  Sex: Female

DRUGS (3)
  1. AMBRISENTAN [Suspect]
     Active Substance: AMBRISENTAN
     Indication: Pulmonary arterial hypertension
     Dosage: 5MG DAILY PO
     Route: 048
     Dates: start: 20210125
  2. TADALAFIL [Suspect]
     Active Substance: TADALAFIL
     Indication: Pulmonary arterial hypertension
     Dosage: 40MG DAILY PO
     Route: 048
     Dates: start: 20210324
  3. REMODULIN [Suspect]
     Active Substance: TREPROSTINIL

REACTIONS (1)
  - Mental status changes [None]

NARRATIVE: CASE EVENT DATE: 20230329
